FAERS Safety Report 12717793 (Version 2)
Quarter: 2016Q3

REPORT INFORMATION
  Report Type: Spontaneous
  Country: US (occurrence: US)
  Receive Date: 20160906
  Receipt Date: 20160920
  Transmission Date: 20161109
  Serious: Yes (Other)
  Sender: FDA-Public Use
  Company Number: US-PFIZER INC-2016415040

PATIENT
  Age: 22 Year
  Sex: Male
  Weight: 61 kg

DRUGS (2)
  1. EPIPEN [Suspect]
     Active Substance: EPINEPHRINE
     Indication: HYPERSENSITIVITY
     Dosage: UNK
     Route: 030
     Dates: start: 20160824, end: 20160824
  2. EPIPEN [Suspect]
     Active Substance: EPINEPHRINE
     Indication: ARTHROPOD STING

REACTIONS (5)
  - Chest discomfort [Recovered/Resolved]
  - Underdose [Unknown]
  - Injection site injury [Not Recovered/Not Resolved]
  - Feeling abnormal [Not Recovered/Not Resolved]
  - Product quality issue [Recovered/Resolved]

NARRATIVE: CASE EVENT DATE: 20160824
